FAERS Safety Report 4881685-2 (Version None)
Quarter: 2006Q1

REPORT INFORMATION
  Report Type: 
  Country: None (occurrence: None)
  Receive Date: 20060116
  Receipt Date: 20060105
  Transmission Date: 20060701
  Serious: Yes (Hospitalization)
  Sender: FDA-Public Use
  Company Number: JP-JNJFOC-20040907979

PATIENT
  Sex: Female

DRUGS (16)
  1. RISPERDAL [Suspect]
     Route: 048
  2. RISPERDAL [Suspect]
     Route: 048
  3. RISPERDAL [Suspect]
     Route: 048
  4. RISPERDAL [Suspect]
     Indication: SCHIZOPHRENIA
     Route: 048
  5. RISPERDAL [Suspect]
     Route: 048
  6. RISPERDAL [Suspect]
     Route: 048
  7. VALPROATE SODIUM [Concomitant]
     Indication: MOOD ALTERED
     Route: 048
  8. BROTIZOLAM [Concomitant]
     Route: 048
  9. BIPERIDEN HYDROCHLORIDE TAB [Concomitant]
     Route: 048
  10. LEVOMEPROMAZINE MALEATE [Concomitant]
     Indication: SCHIZOPHRENIA
     Route: 048
  11. LORAZEPAM [Concomitant]
     Route: 048
  12. LORAZEPAM [Concomitant]
     Route: 048
  13. LORAZEPAM [Concomitant]
     Route: 048
  14. METOCLOPRAMIDE [Concomitant]
     Route: 048
  15. LEVOFLOXACIN [Concomitant]
     Indication: URINARY TRACT INFECTION
     Route: 048
  16. HALOPERIDOL [Concomitant]
     Indication: SCHIZOPHRENIA

REACTIONS (9)
  - ANXIETY [None]
  - BLOOD CREATINE PHOSPHOKINASE INCREASED [None]
  - BLOOD CREATININE INCREASED [None]
  - BLOOD UREA INCREASED [None]
  - DEHYDRATION [None]
  - NAUSEA [None]
  - PORIOMANIA [None]
  - PYELONEPHRITIS [None]
  - SCHIZOPHRENIA [None]
